FAERS Safety Report 5774214-2 (Version None)
Quarter: 2008Q2

REPORT INFORMATION
  Report Type: 
  Country: None (occurrence: None)
  Receive Date: 20080616
  Receipt Date: 20080605
  Transmission Date: 20081010
  Serious: Yes (Other)
  Sender: FDA-Public Use
  Company Number: PL-ROCHE-441773

PATIENT
  Age: 44 Year
  Sex: Male

DRUGS (7)
  1. RIVOTRIL [Suspect]
     Indication: EPILEPSY
     Route: 048
  2. RIVOTRIL [Suspect]
     Route: 048
     Dates: start: 19700101, end: 19940101
  3. UNSPECIFIED DRUGS [Suspect]
     Indication: EPILEPSY
     Route: 065
  4. HEPATIL [Concomitant]
     Indication: HAEMANGIOMA OF LIVER
  5. VITAMIN A/VITAMIN E [Concomitant]
  6. VITAMIN A/VITAMIN E [Concomitant]
  7. VITAMIN B [Concomitant]

REACTIONS (9)
  - ABDOMINAL PAIN [None]
  - ALOPECIA [None]
  - EPILEPSY [None]
  - EYE PAIN [None]
  - GENERAL PHYSICAL HEALTH DETERIORATION [None]
  - HEADACHE [None]
  - HEART RATE DECREASED [None]
  - HYPERSOMNIA [None]
  - HYPERTENSION [None]
